FAERS Safety Report 13521754 (Version 1)
Quarter: 2017Q2

REPORT INFORMATION
  Report Type: Spontaneous
  Country: US (occurrence: US)
  Receive Date: 20170507
  Receipt Date: 20170507
  Transmission Date: 20170830
  Serious: Yes (Disabling)
  Sender: FDA-Public Use
  Company Number: None

PATIENT
  Age: 52 Year
  Sex: Female
  Weight: 80.55 kg

DRUGS (1)
  1. LEVOFLOXACIN. [Suspect]
     Active Substance: LEVOFLOXACIN
     Indication: SINUSITIS
     Route: 048
     Dates: start: 20160621, end: 20160623

REACTIONS (35)
  - Vibratory sense increased [None]
  - Bursitis [None]
  - Quality of life decreased [None]
  - Musculoskeletal disorder [None]
  - Visual impairment [None]
  - Muscle twitching [None]
  - Meralgia paraesthetica [None]
  - Fibromyalgia [None]
  - Tendon disorder [None]
  - Halo vision [None]
  - Memory impairment [None]
  - Fatigue [None]
  - Palpitations [None]
  - Ligament disorder [None]
  - Nervous system disorder [None]
  - Complex regional pain syndrome [None]
  - Sacroiliitis [None]
  - Hypermobility syndrome [None]
  - Paraesthesia [None]
  - Visual field defect [None]
  - Tendonitis [None]
  - Impaired work ability [None]
  - Vitreous floaters [None]
  - Tachycardia [None]
  - Toxicity to various agents [None]
  - Movement disorder [None]
  - Bedridden [None]
  - Hyperhidrosis [None]
  - Neuropathy peripheral [None]
  - Tremor [None]
  - Abasia [None]
  - Feeling abnormal [None]
  - Vitamin D deficiency [None]
  - Cortisol deficiency [None]
  - Dehydroepiandrosterone decreased [None]

NARRATIVE: CASE EVENT DATE: 20160624
